FAERS Safety Report 7252993-5 (Version None)
Quarter: 2011Q1

REPORT INFORMATION
  Report Type: 
  Country: None (occurrence: None)
  Receive Date: 20110129
  Receipt Date: 20100311
  Transmission Date: 20110831
  Serious: No
  Sender: FDA-Public Use
  Company Number: US-ABBOTT-10P-163-0631911-00

PATIENT
  Sex: Male
  Weight: 113.5 kg

DRUGS (1)
  1. HUMIRA [Suspect]
     Indication: CROHN'S DISEASE
     Dates: start: 20100224

REACTIONS (4)
  - PAIN [None]
  - NAUSEA [None]
  - MALAISE [None]
  - INJECTION SITE PAIN [None]
